FAERS Safety Report 14157500 (Version 13)
Quarter: 2018Q3

REPORT INFORMATION
  Report Type: Report from Study
  Country: CO (occurrence: CO)
  Receive Date: 20171103
  Receipt Date: 20180928
  Transmission Date: 20181010
  Serious: Yes (Hospitalization, Other)
  Sender: FDA-Public Use
  Company Number: CO-SA-2017SA210716

PATIENT
  Age: 54 Year
  Sex: Female

DRUGS (1)
  1. ALEMTUZUMAB [Suspect]
     Active Substance: ALEMTUZUMAB
     Indication: MULTIPLE SCLEROSIS
     Dosage: 12 MG,QD
     Route: 041
     Dates: start: 20170925, end: 20170929

REACTIONS (18)
  - Pain in extremity [Not Recovered/Not Resolved]
  - Rash generalised [Not Recovered/Not Resolved]
  - Crystalluria [Recovered/Resolved]
  - Blood thyroid stimulating hormone increased [Unknown]
  - Monocyte count increased [Not Recovered/Not Resolved]
  - Rash [Not Recovered/Not Resolved]
  - Red blood cells urine positive [Unknown]
  - Burning sensation [Not Recovered/Not Resolved]
  - Nitrite urine present [Recovered/Resolved]
  - Urinary tract infection bacterial [Recovered/Resolved]
  - Muscle spasms [Recovered/Resolved]
  - Leukocyturia [Recovered/Resolved]
  - Leukopenia [Recovered/Resolved]
  - Herpes zoster [Not Recovered/Not Resolved]
  - Urine ketone body present [Not Recovered/Not Resolved]
  - Neck pain [Not Recovered/Not Resolved]
  - Bacteriuria [Recovered/Resolved]
  - Haematuria [Recovered/Resolved]

NARRATIVE: CASE EVENT DATE: 20171025
